FAERS Safety Report 18727537 (Version 1)
Quarter: 2021Q1

REPORT INFORMATION
  Report Type: Spontaneous
  Country: TW (occurrence: TW)
  Receive Date: 20210112
  Receipt Date: 20210112
  Transmission Date: 20210419
  Serious: Yes (Other)
  Sender: FDA-Public Use
  Company Number: TW-AMGEN-TWNSP2021003264

PATIENT
  Age: 3 Year

DRUGS (5)
  1. BLINCYTO [Suspect]
     Active Substance: BLINATUMOMAB
     Indication: ACUTE LYMPHOCYTIC LEUKAEMIA RECURRENT
     Dosage: 5 MILLIGRAM/SQ. METER, QD
     Route: 065
     Dates: start: 20200511, end: 20200607
  2. ZOVIRAX [Concomitant]
     Active Substance: ACYCLOVIR
     Dosage: UNK
     Dates: start: 20200512
  3. VANCOMYCIN [Concomitant]
     Active Substance: VANCOMYCIN
     Dosage: 500 MILLIGRAM, QID
     Dates: start: 20200515
  4. CEFIM [CEFIXIME] [Concomitant]
     Active Substance: CEFIXIME
     Dosage: 500 MILLIGRAM
     Dates: start: 20200512
  5. BLINCYTO [Suspect]
     Active Substance: BLINATUMOMAB
     Dosage: 15 MILLIGRAM/SQ. METER, QD
     Route: 065
     Dates: start: 20200615, end: 20200712

REACTIONS (4)
  - Thrombocytopenia [Unknown]
  - Pancytopenia [Unknown]
  - Anaemia [Unknown]
  - Cytokine release syndrome [Unknown]
